FAERS Safety Report 5144361-7 (Version None)
Quarter: 2006Q4

REPORT INFORMATION
  Report Type: 
  Country: None (occurrence: None)
  Receive Date: 20061030
  Receipt Date: 20061017
  Transmission Date: 20070319
  Serious: Yes (Other)
  Sender: FDA-Public Use
  Company Number: 2006127732

PATIENT
  Age: 77 Year
  Sex: Female
  Weight: 68.0396 kg

DRUGS (3)
  1. LYRICA [Suspect]
     Indication: HERPES ZOSTER
     Dosage: 150 MG (50 MG, 3 IN 1 D)
     Dates: start: 20031016
  2. OMEGA 3 (FISH OIL) [Concomitant]
  3. VITAMIN CAP [Concomitant]

REACTIONS (4)
  - BALANCE DISORDER [None]
  - CONDITION AGGRAVATED [None]
  - VISION BLURRED [None]
  - VISUAL ACUITY REDUCED [None]
